FAERS Safety Report 23892698 (Version 1)
Quarter: 2024Q2

REPORT INFORMATION
  Report Type: Other
  Country: CN (occurrence: None)
  Receive Date: 20240524
  Receipt Date: 20240524
  Transmission Date: 20240715
  Serious: Yes (Other)
  Sender: FDA-Public Use
  Company Number: CN-ROCHE-3567441

PATIENT
  Age: 53 Year
  Sex: Female

DRUGS (8)
  1. MABTHERA [Suspect]
     Active Substance: RITUXIMAB
     Indication: Diffuse large B-cell lymphoma
     Route: 041
     Dates: start: 20160923
  2. CYCLOPHOSPHAMIDE [Concomitant]
     Active Substance: CYCLOPHOSPHAMIDE
     Indication: Diffuse large B-cell lymphoma
     Dosage: CYCLE 1,ON DAY1
     Route: 042
     Dates: start: 20160923
  3. CYCLOPHOSPHAMIDE [Concomitant]
     Active Substance: CYCLOPHOSPHAMIDE
     Dosage: CYCLE 2,ON DAY1
     Route: 042
     Dates: start: 20161014
  4. PIRARUBICIN [Concomitant]
     Active Substance: PIRARUBICIN
     Indication: Diffuse large B-cell lymphoma
     Dosage: CYCLE 1, ON DAY1
     Route: 042
     Dates: start: 20160923
  5. PIRARUBICIN [Concomitant]
     Active Substance: PIRARUBICIN
     Dosage: CYCLE 2, ON DAY1
     Route: 042
     Dates: start: 20161014
  6. VINDESINE [Concomitant]
     Active Substance: VINDESINE
     Indication: Diffuse large B-cell lymphoma
     Dosage: CYCLE 1, ON DAY1
     Route: 042
     Dates: start: 20160923
  7. VINDESINE [Concomitant]
     Active Substance: VINDESINE
     Dosage: CYCLE 2, ON DAY1
     Route: 042
     Dates: start: 20161014
  8. PREDNISONE [Concomitant]
     Active Substance: PREDNISONE
     Indication: Diffuse large B-cell lymphoma
     Dosage: ON DAY1 TO DAY5
     Dates: start: 20160923

REACTIONS (2)
  - Myelosuppression [Recovered/Resolved]
  - White blood cell count decreased [Recovering/Resolving]

NARRATIVE: CASE EVENT DATE: 20161101
